FAERS Safety Report 9928056 (Version 1)
Quarter: 2014Q1

REPORT INFORMATION
  Report Type: Spontaneous
  Country: CL (occurrence: None)
  Receive Date: 20140224
  Receipt Date: 20140224
  Transmission Date: 20141002
  Serious: Yes (Hospitalization)
  Sender: FDA-Public Use
  Company Number: METF20140001

PATIENT
  Age: 72 Year
  Sex: Female

DRUGS (1)
  1. METFORMIN HYDROCHLORIDE [Suspect]
     Indication: DIABETES MELLITUS

REACTIONS (8)
  - Fall [None]
  - Multi-organ failure [None]
  - Subdural haematoma [None]
  - Upper gastrointestinal haemorrhage [None]
  - Varices oesophageal [None]
  - Gastric ulcer [None]
  - Liver injury [None]
  - Portal hypertension [None]
